FAERS Safety Report 6993574-8 (Version None)
Quarter: 2010Q3

REPORT INFORMATION
  Report Type: 
  Country: None (occurrence: None)
  Receive Date: 20100917
  Receipt Date: 20100906
  Transmission Date: 20110219
  Serious: Yes (Hospitalization)
  Sender: FDA-Public Use
  Company Number: PHHY2010FR59591

PATIENT
  Sex: Male

DRUGS (5)
  1. GLEEVEC [Suspect]
     Indication: CHRONIC MYELOID LEUKAEMIA
     Dosage: 1 DF, QD
     Route: 048
     Dates: start: 20100507, end: 20100520
  2. PYOSTACINE [Suspect]
     Indication: FURUNCLE
     Dosage: UNK
     Route: 048
     Dates: start: 20100520, end: 20100528
  3. PERINDOPRIL ERBUMINE [Concomitant]
  4. KARGEIC [Concomitant]
  5. CRESTOR [Concomitant]

REACTIONS (3)
  - RASH [None]
  - TOXIC SKIN ERUPTION [None]
  - VASCULAR PURPURA [None]
